FAERS Safety Report 4528769-6 (Version None)
Quarter: 2004Q4

REPORT INFORMATION
  Report Type: 
  Country: None (occurrence: None)
  Receive Date: 20041216
  Receipt Date: 20041208
  Transmission Date: 20050328
  Serious: Yes (Life-Threatening, Hospitalization)
  Sender: FDA-Public Use
  Company Number: FI-ROCHE-388705

PATIENT
  Age: 69 Year
  Sex: Female

DRUGS (5)
  1. XELODA [Suspect]
     Indication: COLORECTAL CANCER
     Route: 048
     Dates: start: 20041203, end: 20041205
  2. RIVATRIL [Concomitant]
     Indication: EPILEPSY
  3. FOSAMAX [Concomitant]
  4. CALCICHEW [Concomitant]
  5. BEXTRA [Concomitant]
     Indication: PAIN

REACTIONS (4)
  - ARTERIOVENOUS MALFORMATION [None]
  - CEREBRAL HAEMORRHAGE [None]
  - DYSPHASIA [None]
  - VOMITING [None]
